FAERS Safety Report 4721480-8 (Version None)
Quarter: 2005Q3

REPORT INFORMATION
  Report Type: 
  Country: None (occurrence: None)
  Receive Date: 20050721
  Receipt Date: 20041004
  Transmission Date: 20060218
  Serious: No
  Sender: FDA-Public Use
  Company Number: US-BRISTOL-MYERS SQUIBB COMPANY-12720975

PATIENT
  Age: 80 Year
  Sex: Female
  Weight: 67 kg

DRUGS (4)
  1. COUMADIN [Suspect]
     Indication: ATRIAL FIBRILLATION
     Route: 048
  2. BETAPACE [Concomitant]
  3. CELEBREX [Concomitant]
  4. MULTI-VITAMIN [Concomitant]

REACTIONS (3)
  - ASTHENIA [None]
  - ECCHYMOSIS [None]
  - STOMACH DISCOMFORT [None]
